FAERS Safety Report 6575720-3 (Version None)
Quarter: 2010Q1

REPORT INFORMATION
  Report Type: 
  Country: None (occurrence: None)
  Receive Date: 20100208
  Receipt Date: 20100208
  Transmission Date: 20100710
  Serious: Yes (Other)
  Sender: FDA-Public Use
  Company Number: None

PATIENT
  Age: 74 Year
  Sex: Male

DRUGS (1)
  1. RITUXIMAB [Suspect]
     Dosage: IV
     Route: 042

REACTIONS (3)
  - CYTOKINE STORM [None]
  - RESPIRATORY DISTRESS [None]
  - TACHYCARDIA [None]
